FAERS Safety Report 23242115 (Version 1)
Quarter: 2023Q4

REPORT INFORMATION
  Report Type: Spontaneous
  Country: GB (occurrence: GB)
  Receive Date: 20231129
  Receipt Date: 20231129
  Transmission Date: 20240109
  Serious: Yes (Disabling)
  Sender: FDA-Public Use
  Company Number: None

PATIENT
  Age: 44 Year
  Sex: Male
  Weight: 75 kg

DRUGS (3)
  1. MIRTAZAPINE [Suspect]
     Active Substance: MIRTAZAPINE
     Indication: Ill-defined disorder
     Dosage: UNK
     Route: 065
     Dates: start: 20231120
  2. COMIRNATY (TOZINAMERAN) [Concomitant]
     Active Substance: TOZINAMERAN
     Indication: Ill-defined disorder
     Dosage: 0.3 MILLILITER
     Route: 030
     Dates: start: 20230925, end: 20230926
  3. MIRTAZAPINE [Concomitant]
     Active Substance: MIRTAZAPINE
     Indication: Ill-defined disorder
     Dosage: 1 DOSAGE FORM, QD (ONE TO BE TAKEN AT NIGHT)
     Route: 065
     Dates: start: 20230818, end: 20231027

REACTIONS (1)
  - Sedation complication [Recovering/Resolving]

NARRATIVE: CASE EVENT DATE: 20231120
